FAERS Safety Report 15435822 (Version 1)
Quarter: 2018Q3

REPORT INFORMATION
  Report Type: Spontaneous
  Country: HR (occurrence: HR)
  Receive Date: 20180927
  Receipt Date: 20180927
  Transmission Date: 20181010
  Serious: Yes (Other)
  Sender: FDA-Public Use
  Company Number: HR-TEVA-2018-HR-958735

PATIENT
  Age: 75 Year
  Sex: Female

DRUGS (8)
  1. MARTEFARIN [Concomitant]
     Active Substance: WARFARIN
     Route: 048
  2. KALINOR [Concomitant]
     Route: 048
  3. PLIVIT D3 [Concomitant]
     Active Substance: CHOLECALCIFEROL
     Indication: OSTEOPOROSIS
     Route: 048
  4. CONCOR COR [Concomitant]
     Active Substance: BISOPROLOL FUMARATE
     Dosage: 1.25 MILLIGRAM DAILY;
     Route: 048
  5. TULIP [Concomitant]
     Route: 048
  6. EUTHYROX [Concomitant]
     Active Substance: LEVOTHYROXINE SODIUM
     Dosage: 100 MICROGRAM DAILY;
     Route: 048
  7. FURSEMID [Concomitant]
     Active Substance: FUROSEMIDE
     Route: 048
  8. PRILEN [Suspect]
     Active Substance: RAMIPRIL
     Indication: HYPERTENSION
     Dosage: 2.5 MILLIGRAM DAILY; 2,5; 0,0,1
     Route: 048
     Dates: start: 2016, end: 201802

REACTIONS (3)
  - Dysphagia [Recovered/Resolved]
  - Swollen tongue [Recovered/Resolved]
  - Glossodynia [Recovered/Resolved]

NARRATIVE: CASE EVENT DATE: 201802
